FAERS Safety Report 21176836 (Version 2)
Quarter: 2022Q4

REPORT INFORMATION
  Report Type: Report from Study
  Country: FR (occurrence: None)
  Receive Date: 20220805
  Receipt Date: 20221124
  Transmission Date: 20230113
  Serious: Yes (Other)
  Sender: FDA-Public Use
  Company Number: 2022A268826

PATIENT
  Age: 57 Year
  Sex: Male
  Weight: 93.5 kg

DRUGS (4)
  1. EVUSHELD [Suspect]
     Active Substance: CILGAVIMAB\TIXAGEVIMAB
     Indication: COVID-19 pneumonia
     Route: 030
     Dates: start: 20220207, end: 20220207
  2. TOCILIZUMAB [Suspect]
     Active Substance: TOCILIZUMAB
     Indication: COVID-19 pneumonia
     Route: 042
     Dates: start: 20220204, end: 20220205
  3. DEXAMETHASONE [Suspect]
     Active Substance: DEXAMETHASONE
     Indication: COVID-19 pneumonia
     Route: 042
     Dates: start: 20220204, end: 20220213
  4. LEVOTHYROXINE [Concomitant]
     Active Substance: LEVOTHYROXINE
     Route: 065

REACTIONS (2)
  - Dermatitis bullous [Recovering/Resolving]
  - Fixed eruption [Recovering/Resolving]

NARRATIVE: CASE EVENT DATE: 20220208
